FAERS Safety Report 9303645 (Version 5)
Quarter: 2013Q3

REPORT INFORMATION
  Report Type: Report from Study
  Country: US (occurrence: US)
  Receive Date: 20130522
  Receipt Date: 20130809
  Transmission Date: 20140515
  Serious: Yes (Hospitalization)
  Sender: FDA-Public Use
  Company Number: US-PFIZER INC-2013155612

PATIENT
  Age: 55 Year
  Sex: Male
  Weight: 89.9 kg

DRUGS (14)
  1. SUNITINIB MALATE [Suspect]
     Indication: OESOPHAGEAL ADENOCARCINOMA
     Dosage: 25 MG, ONCE DAILY, 2 WEEKS/MONTH
     Route: 048
     Dates: start: 20091102, end: 20130517
  2. SUNITINIB MALATE [Suspect]
     Dosage: 25 MG, ONCE DAILY, 2 WEEKS/MONTH
     Route: 048
     Dates: start: 20130520, end: 20130521
  3. FLUOROURACIL [Suspect]
     Indication: OESOPHAGEAL ADENOCARCINOMA
     Dosage: 320 MG/M2, EVERY 2 WEEKS
     Route: 040
     Dates: start: 20091102, end: 20130506
  4. FLUOROURACIL [Suspect]
     Dosage: 2000 MG/M2, IV DRIP CONTINUOUS 48H, EVERY 2 WEEKS
     Route: 041
     Dates: start: 20091102, end: 20130508
  5. IRINOTECAN HCL [Suspect]
     Indication: OESOPHAGEAL ADENOCARCINOMA
     Dosage: 150 MG/M2, EVERY 2 WEEKS
     Route: 042
     Dates: start: 20091102, end: 20130506
  6. LEUCOVORIN [Concomitant]
     Indication: OESOPHAGEAL ADENOCARCINOMA
     Dosage: 400 MG/M2, EVERY 2 WEEKS
     Route: 042
     Dates: start: 20091102, end: 20130506
  7. ADVAIR [Concomitant]
     Dosage: UNK
  8. ALBUTEROL [Concomitant]
     Dosage: UNK
  9. ESOMEPRAZOLE [Concomitant]
     Dosage: UNK
  10. IMODIUM [Concomitant]
     Dosage: UNK
  11. OXYCODONE [Concomitant]
     Dosage: UNK
  12. PROTONIX [Concomitant]
     Dosage: UNK
  13. REGLAN [Concomitant]
     Dosage: UNK
  14. VIAGRA [Concomitant]
     Dosage: UNK

REACTIONS (1)
  - Peripheral artery thrombosis [Recovered/Resolved]
